FAERS Safety Report 7772676-2 (Version None)
Quarter: 2011Q3

REPORT INFORMATION
  Report Type: 
  Country: None (occurrence: None)
  Receive Date: 20110922
  Receipt Date: 20110719
  Transmission Date: 20111222
  Serious: No
  Sender: FDA-Public Use
  Company Number: US-ASTRAZENECA-2011SE32075

PATIENT
  Age: 54 Year
  Sex: Female

DRUGS (8)
  1. WELLBUTRIN [Concomitant]
  2. ALPRAZOLAM [Concomitant]
  3. SEROQUEL [Suspect]
     Indication: ANXIETY
     Route: 048
     Dates: start: 20070101
  4. SEROQUEL [Suspect]
     Indication: OBSESSIVE-COMPULSIVE DISORDER
     Route: 048
     Dates: start: 20070101
  5. ASPIRIN [Concomitant]
  6. LISINOPRIL [Concomitant]
  7. SEROQUEL [Suspect]
     Indication: DEPRESSION
     Route: 048
     Dates: start: 20070101
  8. GEODON [Concomitant]

REACTIONS (4)
  - NASOPHARYNGITIS [None]
  - NASAL CONGESTION [None]
  - PAIN [None]
  - OROPHARYNGEAL PAIN [None]
